FAERS Safety Report 23583980 (Version 1)
Quarter: 2024Q1

REPORT INFORMATION
  Report Type: Spontaneous
  Country: US (occurrence: None)
  Receive Date: 20240301
  Receipt Date: 20240301
  Transmission Date: 20240409
  Serious: No
  Sender: FDA-Public Use
  Company Number: 2024A038710

PATIENT
  Sex: Male

DRUGS (1)
  1. SYMBICORT [Suspect]
     Active Substance: BUDESONIDE\FORMOTEROL FUMARATE DIHYDRATE
     Dosage: 160 UG, TWO PUFFS, TWO TIMES A DAY
     Route: 055

REACTIONS (5)
  - Nocturnal dyspnoea [Unknown]
  - Product packaging confusion [Unknown]
  - Device breakage [Unknown]
  - Device use issue [Unknown]
  - Intentional product misuse [Unknown]
